FAERS Safety Report 10243316 (Version 3)
Quarter: 2014Q4

REPORT INFORMATION
  Report Type: Report from Study
  Country: FR (occurrence: FR)
  Receive Date: 20140618
  Receipt Date: 20141112
  Transmission Date: 20150528
  Serious: Yes (Other)
  Sender: FDA-Public Use
  Company Number: PHHO2014FR008587

PATIENT
  Age: 54 Year
  Sex: Male
  Weight: 78 kg

DRUGS (9)
  1. LASILIX [Concomitant]
     Active Substance: FUROSEMIDE
     Indication: OEDEMA DUE TO RENAL DISEASE
     Dosage: 40 MG, PER DAY
     Route: 048
     Dates: start: 20110913, end: 20140610
  2. EVEROLIMUS [Suspect]
     Active Substance: EVEROLIMUS
     Indication: RENAL TRANSPLANT
     Dosage: 1.5 MG, PER DAY
     Route: 048
     Dates: start: 20140607
  3. CICLOSPORIN [Suspect]
     Active Substance: CYCLOSPORINE
     Indication: RENAL TRANSPLANT
     Dosage: 200 MG, PER DAY
     Route: 065
     Dates: start: 20140607
  4. TRANSIPEG                          /01618701/ [Concomitant]
     Indication: CONSTIPATION
     Dosage: 2 DF(SACHETS), UNK
     Route: 048
     Dates: start: 20140612
  5. SECTRAL [Concomitant]
     Active Substance: ACEBUTOLOL HYDROCHLORIDE
     Indication: HYPERTENSION
     Dosage: 200 MG, PER DAY
     Route: 048
     Dates: start: 20140213, end: 20140607
  6. NEBIVOLOL [Concomitant]
     Active Substance: NEBIVOLOL
     Indication: HYPOTENSION
     Dosage: 5 MG, UNK
     Route: 048
     Dates: start: 20140611
  7. TAHOR [Concomitant]
     Active Substance: ATORVASTATIN CALCIUM
     Indication: HYPERLIPIDAEMIA
     Dosage: 40 MG, PER DAY
     Route: 048
     Dates: start: 20110913, end: 20140607
  8. SIMULECT [Suspect]
     Active Substance: BASILIXIMAB
     Indication: RENAL TRANSPLANT
     Dosage: 20 MG, UNK
     Route: 065
     Dates: start: 20140607
  9. XATRAL [Concomitant]
     Active Substance: ALFUZOSIN
     Indication: PROSTATITIS
     Dosage: 10 MG, PER DAY
     Route: 048
     Dates: start: 20140612

REACTIONS (2)
  - Urinary tract infection enterococcal [Recovered/Resolved]
  - Lung disorder [Recovered/Resolved]

NARRATIVE: CASE EVENT DATE: 20140611
